FAERS Safety Report 6119667-5 (Version None)
Quarter: 2009Q1

REPORT INFORMATION
  Report Type: 
  Country: None (occurrence: None)
  Receive Date: 20090316
  Receipt Date: 20090306
  Transmission Date: 20090719
  Serious: Yes (Other)
  Sender: FDA-Public Use
  Company Number: JP-AVENTIS-200910626JP

PATIENT
  Age: 63 Year
  Sex: Female

DRUGS (1)
  1. TAXOTERE [Suspect]
     Route: 041

REACTIONS (3)
  - ANAPHYLACTOID REACTION [None]
  - DYSPNOEA [None]
  - FLUSHING [None]
